FAERS Safety Report 26171535 (Version 1)
Quarter: 2025Q4

REPORT INFORMATION
  Report Type: Spontaneous
  Country: US (occurrence: US)
  Receive Date: 20251217
  Receipt Date: 20251217
  Transmission Date: 20260119
  Serious: No
  Sender: ABBVIE
  Company Number: US-ABBVIE-6594645

PATIENT
  Sex: Male

DRUGS (1)
  1. CREON [Suspect]
     Active Substance: PANCRELIPASE AMYLASE\PANCRELIPASE LIPASE\PANCRELIPASE PROTEASE
     Indication: Pancreatic failure
     Dosage: 24000 UNITS, 90 DAYS^ SUPPLY, SIX BOTTLES WITH 100 CAPSULES EACH.
     Route: 048

REACTIONS (2)
  - Therapeutic product effect decreased [Unknown]
  - Product temperature excursion issue [Unknown]
